FAERS Safety Report 25868206 (Version 2)
Quarter: 2025Q4

REPORT INFORMATION
  Report Type: Spontaneous
  Country: JP (occurrence: JP)
  Receive Date: 20251001
  Receipt Date: 20251016
  Transmission Date: 20260117
  Serious: Yes (Hospitalization)
  Sender: ROCHE
  Company Number: JP-CHUGAI-2025030754

PATIENT
  Age: 8 Decade
  Sex: Male

DRUGS (1)
  1. PIASKY [Suspect]
     Active Substance: CROVALIMAB-AKKZ
     Indication: Paroxysmal nocturnal haemoglobinuria
     Route: 058

REACTIONS (1)
  - Urinary tract infection [Not Recovered/Not Resolved]

NARRATIVE: CASE EVENT DATE: 20250101
